FAERS Safety Report 12172945 (Version 1)
Quarter: 2016Q1

REPORT INFORMATION
  Report Type: Report from Study
  Country: US (occurrence: US)
  Receive Date: 20160311
  Receipt Date: 20160311
  Transmission Date: 20160526
  Serious: Yes (Hospitalization, Other)
  Sender: FDA-Public Use
  Company Number: US-CORCEPT THERAPEUTICS INC.-US-2015CRT000542

PATIENT

DRUGS (3)
  1. LOVENOX [Suspect]
     Active Substance: ENOXAPARIN SODIUM
     Indication: PRODUCT USED FOR UNKNOWN INDICATION
     Dosage: UNK, DAILY
     Route: 058
     Dates: end: 20150702
  2. COUMADIN [Suspect]
     Active Substance: WARFARIN SODIUM
     Indication: PRODUCT USED FOR UNKNOWN INDICATION
     Dosage: UNK, DAILY
     Route: 048
     Dates: end: 20150702
  3. KORLYM [Suspect]
     Active Substance: MIFEPRISTONE
     Indication: CUSHING^S SYNDROME
     Dosage: 300 MG, DAILY
     Route: 048
     Dates: start: 20150620

REACTIONS (16)
  - Renal impairment [Not Recovered/Not Resolved]
  - Oesophageal obstruction [Not Recovered/Not Resolved]
  - Diarrhoea [Recovered/Resolved]
  - Prothrombin time abnormal [Unknown]
  - Decreased appetite [Recovering/Resolving]
  - Vomiting [Recovering/Resolving]
  - International normalised ratio abnormal [Unknown]
  - Nausea [Recovering/Resolving]
  - Decreased appetite [Not Recovered/Not Resolved]
  - Blood corticotrophin decreased [Recovering/Resolving]
  - Dysphagia [Not Recovered/Not Resolved]
  - Fatigue [Recovering/Resolving]
  - Oliguria [Not Recovered/Not Resolved]
  - Hypopituitarism [Recovering/Resolving]
  - Mental status changes [Not Recovered/Not Resolved]
  - Blood cortisol decreased [Recovering/Resolving]

NARRATIVE: CASE EVENT DATE: 2015
